FAERS Safety Report 25300397 (Version 1)
Quarter: 2025Q2

REPORT INFORMATION
  Report Type: Spontaneous
  Country: US (occurrence: None)
  Receive Date: 20250510
  Receipt Date: 20250510
  Transmission Date: 20250716
  Serious: No
  Sender: FDA-CTU
  Company Number: None

PATIENT
  Sex: Female

DRUGS (6)
  1. TRAZIMERA [Suspect]
     Active Substance: TRASTUZUMAB-QYYP
     Indication: Breast cancer female
     Route: 042
  2. NYVEPRIA [Suspect]
     Active Substance: PEGFILGRASTIM-APGF
     Indication: Breast cancer female
     Route: 058
  3. NYVEPRIA [Concomitant]
     Active Substance: PEGFILGRASTIM-APGF
  4. DOCETAXEL MDV [Concomitant]
  5. TRAZIMERA MDV [Concomitant]
  6. CARBOPLATIN [Concomitant]
     Active Substance: CARBOPLATIN

REACTIONS (1)
  - Drug level decreased [None]
